FAERS Safety Report 9571879 (Version 2)
Quarter: 2013Q4

REPORT INFORMATION
  Report Type: Report from Study
  Country: US (occurrence: US)
  Receive Date: 20131001
  Receipt Date: 20131001
  Transmission Date: 20140711
  Serious: No
  Sender: FDA-Public Use
  Company Number: US-ABBVIE-10P-163-0642470-00

PATIENT
  Sex: Female
  Weight: 61.29 kg

DRUGS (2)
  1. KALETRA TABLETS [Suspect]
     Indication: HIV INFECTION
     Dates: start: 2009, end: 2009
  2. COMBIVIR [Concomitant]
     Indication: HIV INFECTION

REACTIONS (3)
  - Blood cholesterol increased [Unknown]
  - Diarrhoea [Recovered/Resolved]
  - Lipids increased [Unknown]
